FAERS Safety Report 22520838 (Version 8)
Quarter: 2023Q4

REPORT INFORMATION
  Report Type: Report from Study
  Country: CO (occurrence: CO)
  Receive Date: 20230605
  Receipt Date: 20231006
  Transmission Date: 20240110
  Serious: Yes (Other)
  Sender: FDA-Public Use
  Company Number: CO-KOREA IPSEN Pharma-2023-13240

PATIENT
  Age: 71 Year
  Sex: Female
  Weight: 49 kg

DRUGS (9)
  1. LANREOTIDE ACETATE [Suspect]
     Active Substance: LANREOTIDE ACETATE
     Indication: Acromegaly
     Dosage: 120 MG + 120 MG, 2 DOSES EVERY 28 DAYS
     Route: 058
     Dates: start: 20170901
  2. METOPROLOL [Concomitant]
     Active Substance: METOPROLOL
     Indication: Hypertension
     Dosage: ONE TABLET EACH 12 HOURS
     Route: 048
     Dates: start: 1999
  3. LINAGLIPTIN [Concomitant]
     Active Substance: LINAGLIPTIN
     Indication: Glucose tolerance impaired
     Dosage: ONE TABLET EACH DAY
     Route: 048
     Dates: start: 2020
  4. ATORVASTATIN [Concomitant]
     Active Substance: ATORVASTATIN
     Indication: Blood triglycerides abnormal
     Dosage: ONE TABLET EACH DAY
     Route: 048
     Dates: start: 2020
  5. DEXLANSOPRAZOLE [Concomitant]
     Active Substance: DEXLANSOPRAZOLE
     Indication: Gastritis
     Dosage: ONE TABLET EACH DAY
     Route: 048
     Dates: start: 2010
  6. ACYCLOVIR [Concomitant]
     Active Substance: ACYCLOVIR
     Indication: Herpes zoster
     Dosage: 1 TABLET EVERY 5 HOURS
     Route: 048
     Dates: start: 20230322
  7. FAMOTIDINE [Concomitant]
     Active Substance: FAMOTIDINE
     Indication: Abdominal discomfort
     Dates: start: 20230928
  8. SIMETHICONE (DIMETHICONE) [Concomitant]
     Active Substance: DIMETHICONE
     Indication: Flatulence
     Dates: start: 20230928
  9. PINAVERIUM BROMIDE [Concomitant]
     Active Substance: PINAVERIUM BROMIDE
     Indication: Inflammatory bowel disease
     Dates: start: 20230928

REACTIONS (42)
  - Disease progression [Not Recovered/Not Resolved]
  - Rectal haemorrhage [Recovered/Resolved]
  - Deafness unilateral [Recovering/Resolving]
  - Application site haemorrhage [Not Recovered/Not Resolved]
  - Bone pain [Not Recovered/Not Resolved]
  - Tremor [Not Recovered/Not Resolved]
  - Mouth haemorrhage [Recovered/Resolved]
  - Weight increased [Not Recovered/Not Resolved]
  - Body height decreased [Not Recovered/Not Resolved]
  - Off label use [Unknown]
  - Dry throat [Not Recovered/Not Resolved]
  - Gastritis [Recovered/Resolved]
  - Inner ear inflammation [Recovering/Resolving]
  - Insulin-like growth factor abnormal [Recovering/Resolving]
  - Decreased immune responsiveness [Recovering/Resolving]
  - Oral candidiasis [Recovered/Resolved]
  - Asthenia [Recovering/Resolving]
  - Discouragement [Recovering/Resolving]
  - Aphonia [Recovering/Resolving]
  - Oropharyngeal pain [Not Recovered/Not Resolved]
  - Ear pain [Not Recovered/Not Resolved]
  - Emotional disorder [Recovering/Resolving]
  - Amnesia [Recovering/Resolving]
  - Sinus congestion [Recovered/Resolved]
  - Herpes zoster [Not Recovered/Not Resolved]
  - Pyrexia [Not Recovered/Not Resolved]
  - Oral herpes [Not Recovered/Not Resolved]
  - Discomfort [Not Recovered/Not Resolved]
  - Immune system disorder [Not Recovered/Not Resolved]
  - Nausea [Not Recovered/Not Resolved]
  - Abdominal pain [Not Recovered/Not Resolved]
  - Back pain [Not Recovered/Not Resolved]
  - Pain in extremity [Not Recovered/Not Resolved]
  - Chest pain [Not Recovered/Not Resolved]
  - Headache [Not Recovered/Not Resolved]
  - Microglossia [Recovering/Resolving]
  - Hair growth rate abnormal [Recovering/Resolving]
  - Headache [Recovering/Resolving]
  - Prescribed overdose [Unknown]
  - Headache [Not Recovered/Not Resolved]
  - Abdominal discomfort [Not Recovered/Not Resolved]
  - Off label use [Unknown]

NARRATIVE: CASE EVENT DATE: 20170901
